FAERS Safety Report 10401819 (Version 2)
Quarter: 2014Q3

REPORT INFORMATION
  Report Type: Not Available
  Country: CN (occurrence: CN)
  Receive Date: 20140822
  Receipt Date: 20140902
  Transmission Date: 20150326
  Serious: Yes (Life-Threatening)
  Sender: FDA-Public Use
  Company Number: CN-NAPPMUNDI-GBR-2014-0020338

PATIENT
  Age: 68 Year
  Sex: Male

DRUGS (1)
  1. MS CONTIN [Suspect]
     Active Substance: MORPHINE SULFATE
     Indication: CANCER PAIN
     Dosage: 30 MG, BID
     Route: 048
     Dates: start: 20120409, end: 20120412

REACTIONS (1)
  - Coma [Unknown]

NARRATIVE: CASE EVENT DATE: 20120409
